FAERS Safety Report 10596953 (Version 1)
Quarter: 2014Q4

REPORT INFORMATION
  Report Type: Spontaneous
  Country: TR (occurrence: TR)
  Receive Date: 20141120
  Receipt Date: 20141120
  Transmission Date: 20150529
  Serious: Yes (Death, Hospitalization, Other)
  Sender: FDA-Public Use
  Company Number: TR-009507513-1411TUR007191

PATIENT
  Age: 59 Year
  Sex: Female

DRUGS (2)
  1. DIKLORON (DICLOFENAC SODIUM) [Concomitant]
     Dosage: UNK, QD
     Route: 030
     Dates: start: 20141012
  2. DIPROSPAN [Suspect]
     Active Substance: BETAMETHASONE DIPROPIONATE\BETAMETHASONE SODIUM PHOSPHATE
     Dosage: UNK, ONCE DAILY
     Dates: start: 20141012

REACTIONS (4)
  - Coronary artery thrombosis [Unknown]
  - Cardio-respiratory arrest [Fatal]
  - Tachycardia [Unknown]
  - Hypersensitivity [Fatal]

NARRATIVE: CASE EVENT DATE: 20141012
